FAERS Safety Report 12399420 (Version 2)
Quarter: 2016Q2

REPORT INFORMATION
  Report Type: Report from Study
  Country: US (occurrence: US)
  Receive Date: 20160524
  Receipt Date: 20160614
  Transmission Date: 20160815
  Serious: Yes (Hospitalization, Other)
  Sender: FDA-Public Use
  Company Number: US-ABBVIE-16K-163-1632064-00

PATIENT
  Age: 17 Year
  Sex: Female

DRUGS (2)
  1. CLOBETASOL PROPIONATE. [Concomitant]
     Active Substance: CLOBETASOL PROPIONATE
     Indication: PRODUCT USED FOR UNKNOWN INDICATION
  2. HUMIRA [Suspect]
     Active Substance: ADALIMUMAB
     Indication: PSORIASIS
     Route: 058
     Dates: start: 201510

REACTIONS (7)
  - Facial bones fracture [Recovering/Resolving]
  - Road traffic accident [Recovering/Resolving]
  - Concussion [Recovering/Resolving]
  - Post-traumatic pain [Recovering/Resolving]
  - Dizziness [Recovering/Resolving]
  - Gastroenteritis viral [Recovering/Resolving]
  - Chemical injury [Recovering/Resolving]

NARRATIVE: CASE EVENT DATE: 2016
